FAERS Safety Report 21286337 (Version 2)
Quarter: 2022Q3

REPORT INFORMATION
  Report Type: Spontaneous
  Country: US (occurrence: US)
  Receive Date: 20220902
  Receipt Date: 20220924
  Transmission Date: 20221026
  Serious: Yes (Hospitalization)
  Sender: FDA-Public Use
  Company Number: US-CHIESI-2022CHF04441

PATIENT
  Sex: Male
  Weight: 14.2 kg

DRUGS (3)
  1. BETHKIS [Suspect]
     Active Substance: TOBRAMYCIN
     Indication: Cystic fibrosis lung
     Dosage: 300 MILLIGRAM, BID
     Route: 055
     Dates: start: 202110, end: 202208
  2. BETHKIS [Suspect]
     Active Substance: TOBRAMYCIN
     Dosage: 75 MILLIGRAM PER MILLILITRE, BID
     Route: 055
     Dates: start: 20220818
  3. VITAMINS [Suspect]
     Active Substance: VITAMINS
     Indication: Failure to thrive
     Dosage: UNK, HS
     Route: 041
     Dates: start: 202208

REACTIONS (8)
  - Failure to thrive [Recovered/Resolved]
  - Respiratory tract infection [Recovered/Resolved]
  - Malnutrition [Recovered/Resolved]
  - Post-tussive vomiting [Unknown]
  - Diarrhoea [Recovered/Resolved]
  - Cough [Recovered/Resolved]
  - Treatment noncompliance [Recovered/Resolved]
  - Off label use [Not Recovered/Not Resolved]

NARRATIVE: CASE EVENT DATE: 20210101
